FAERS Safety Report 7110086-1 (Version None)
Quarter: 2010Q4

REPORT INFORMATION
  Report Type: 
  Country: None (occurrence: None)
  Receive Date: 20101118
  Receipt Date: 20101111
  Transmission Date: 20110411
  Serious: Yes (Death, Hospitalization, Other)
  Sender: FDA-Public Use
  Company Number: PHEH2008US00975

PATIENT
  Sex: Female
  Weight: 65.306 kg

DRUGS (52)
  1. AREDIA [Suspect]
     Dosage: UNK
     Dates: start: 20040101
  2. ZOMETA [Suspect]
     Indication: BREAST CANCER
     Dosage: 4 MG, UNK
     Route: 042
     Dates: end: 20070101
  3. HERCEPTIN [Concomitant]
  4. LEXAPRO [Concomitant]
  5. ATIVAN [Concomitant]
  6. XELODA [Concomitant]
  7. CLINDAMYCIN [Concomitant]
     Dosage: 600 MG EVERY 8 HOURS
  8. FLUCONAZOLE [Concomitant]
     Dosage: UNK
  9. LEVAQUIN [Concomitant]
     Dosage: INTRAVENOUS
  10. UNASYN [Concomitant]
     Dosage: INTRAVENOUS
  11. PSEUDOEPHEDRINE HCL [Concomitant]
     Dosage: 30 MG BY MOUTH EVERY 4 HOURS
  12. MORPHINE SULFATE [Concomitant]
     Dosage: 10-20 MG BY MOUTH EVERY 3 HOURS FOR PAIN
  13. METHADONE ^DAK^ [Concomitant]
     Dosage: 10 MG 4 TIMES DAILY
  14. GABAPENTIN [Concomitant]
     Dosage: 300 MG 3 TIMES DAILY
  15. STEROIDS NOS [Concomitant]
     Dosage: UNK
  16. TRASTUZUMAB [Concomitant]
  17. GRANISETRON HYDROCHLORIDE [Concomitant]
  18. DEXAMETHASONE SODIUM PHOSPHATE [Concomitant]
  19. LORAZEPAM [Concomitant]
  20. CALCIUM [Concomitant]
  21. VITAMIN D [Concomitant]
  22. KLONOPIN [Concomitant]
  23. REMERON [Concomitant]
  24. AMITRIPTYLINE HCL [Concomitant]
  25. MS CONTIN [Concomitant]
  26. CELEBREX [Concomitant]
  27. PAXIL [Concomitant]
  28. VICODIN [Concomitant]
  29. AMBIEN [Concomitant]
  30. DIPHENHYDRAMINE HCL [Concomitant]
  31. ACETAMINOPHEN [Concomitant]
  32. ZOFRAN [Concomitant]
  33. POTASSIUM CHLORIDE [Concomitant]
  34. PIPERACILLIN W/TAZOBACTAM [Concomitant]
  35. AUGMENTIN '125' [Concomitant]
  36. ABRAXANE [Concomitant]
  37. CARBOPLATIN [Concomitant]
  38. GEMZAR [Concomitant]
  39. CLONAZEPAM [Concomitant]
  40. ESTRACE [Concomitant]
  41. MAGNESIUM GLUCONATE [Concomitant]
  42. MYCELEX [Concomitant]
  43. TRAZODONE HCL [Concomitant]
  44. KEPPRA [Concomitant]
  45. SCOPOLAMINE [Concomitant]
  46. VANCOMYCIN [Concomitant]
  47. FLAGYL [Concomitant]
  48. LEVOFLOXACIN [Concomitant]
  49. RITALIN [Concomitant]
  50. SILVADENE [Concomitant]
  51. DOXIL [Concomitant]
  52. MINOCYCLINE HCL [Concomitant]

REACTIONS (82)
  - ABDOMINAL HERNIA [None]
  - ALOPECIA [None]
  - ALVEOLOPLASTY [None]
  - AMNESIA [None]
  - ANXIETY [None]
  - ASTHENIA [None]
  - ATAXIA [None]
  - ATELECTASIS [None]
  - BLISTER [None]
  - BODY TEMPERATURE DECREASED [None]
  - BONE DISORDER [None]
  - BRAIN OPERATION [None]
  - BREAST OPERATION [None]
  - BREAST RECONSTRUCTION [None]
  - CELLULITIS [None]
  - CHEILITIS [None]
  - CHEST DISCOMFORT [None]
  - CHEST PAIN [None]
  - CHILLS [None]
  - CHRONIC SINUSITIS [None]
  - COLD SWEAT [None]
  - CONFUSIONAL STATE [None]
  - CONSTIPATION [None]
  - CONVULSION [None]
  - DEATH [None]
  - DEBRIDEMENT [None]
  - DECREASED INTEREST [None]
  - DECUBITUS ULCER [None]
  - DEEP VEIN THROMBOSIS [None]
  - DENTAL CARIES [None]
  - DENTURE WEARER [None]
  - DEVICE RELATED INFECTION [None]
  - DRUG DEPENDENCE [None]
  - DYSPNOEA [None]
  - ERYTHEMA [None]
  - FATIGUE [None]
  - GENERAL PHYSICAL HEALTH DETERIORATION [None]
  - HEADACHE [None]
  - HEPATIC CYST [None]
  - HERNIA REPAIR [None]
  - HERPES SIMPLEX [None]
  - HILAR LYMPHADENOPATHY [None]
  - HYPOAESTHESIA [None]
  - LUNG NEOPLASM [None]
  - MASTICATION DISORDER [None]
  - METASTASES TO BONE [None]
  - METASTASES TO CENTRAL NERVOUS SYSTEM [None]
  - METASTASES TO LUNG [None]
  - MUSCULAR WEAKNESS [None]
  - NAIL DISORDER [None]
  - NAUSEA [None]
  - NEOPLASM [None]
  - NEURODERMATITIS [None]
  - NEUROPATHY PERIPHERAL [None]
  - NEUTROPENIA [None]
  - ORAL CANDIDIASIS [None]
  - ORAL HERPES [None]
  - OSTEOARTHRITIS [None]
  - OSTEOMYELITIS [None]
  - OSTEONECROSIS OF JAW [None]
  - OSTEORADIONECROSIS [None]
  - OSTEOSCLEROSIS [None]
  - PAIN [None]
  - PAIN IN JAW [None]
  - PALMAR-PLANTAR ERYTHRODYSAESTHESIA SYNDROME [None]
  - PERICARDIAL DISEASE [None]
  - PRIMARY SEQUESTRUM [None]
  - PURULENT DISCHARGE [None]
  - RENAL CYST [None]
  - RHINORRHOEA [None]
  - SEPSIS [None]
  - SKIN IRRITATION [None]
  - SWELLING FACE [None]
  - TACHYCARDIA [None]
  - TOOTH EXTRACTION [None]
  - TOOTH LOSS [None]
  - TOOTHACHE [None]
  - TRICUSPID VALVE INCOMPETENCE [None]
  - TRISMUS [None]
  - UNRESPONSIVE TO STIMULI [None]
  - VISION BLURRED [None]
  - WOUND COMPLICATION [None]
